FAERS Safety Report 8082222-4 (Version None)
Quarter: 2012Q1

REPORT INFORMATION
  Report Type: 
  Country: None (occurrence: None)
  Receive Date: 20120127
  Receipt Date: 20110128
  Transmission Date: 20120608
  Serious: No
  Sender: FDA-Public Use
  Company Number: US-ABBOTT-11P-163-0701949-00

PATIENT
  Age: 67 Year
  Sex: Female
  Weight: 71.278 kg

DRUGS (1)
  1. HUMIRA [Suspect]
     Indication: PSORIASIS
     Route: 058
     Dates: start: 20080101, end: 20110101

REACTIONS (3)
  - DERMATITIS [None]
  - UPPER RESPIRATORY TRACT INFECTION [None]
  - EYE PRURITUS [None]
